FAERS Safety Report 9391954 (Version 3)
Quarter: 2014Q1

REPORT INFORMATION
  Report Type: Spontaneous
  Country: GB (occurrence: GB)
  Receive Date: 20130709
  Receipt Date: 20140226
  Transmission Date: 20141002
  Serious: Yes (Death, Other)
  Sender: FDA-Public Use
  Company Number: GB-PFIZER INC-2013201210

PATIENT
  Age: 69 Year
  Sex: Female

DRUGS (9)
  1. SERTRALINE HCL [Suspect]
     Dosage: 150 MG, 1X/DAY
  2. OLANZAPINE [Suspect]
     Dosage: 10 MG, ONCE EACH EVENING
  3. AMLODIPINE [Concomitant]
     Dosage: 5 MG, 1X/DAY
  4. ASPIRIN [Concomitant]
     Dosage: 75 MG, 1X/DAY
  5. CALCICHEW [Concomitant]
     Dosage: UNK
  6. CARBIMAZOLE [Concomitant]
     Dosage: 5 MG, 1X/DAY
  7. DIAZEPAM [Concomitant]
     Dosage: 1 MG, EACH EVENING
  8. SIMVASTATIN [Concomitant]
     Dosage: 40 MG, EACH EVENING
  9. DONEPEZIL [Concomitant]
     Dosage: UNK

REACTIONS (4)
  - Overdose [Fatal]
  - Death [Fatal]
  - Fall [Fatal]
  - Drug level increased [Unknown]
